FAERS Safety Report 9356314 (Version 1)
Quarter: 2013Q2

REPORT INFORMATION
  Report Type: Spontaneous
  Country: US (occurrence: US)
  Receive Date: 20130619
  Receipt Date: 20130619
  Transmission Date: 20140414
  Serious: Yes (Death, Other)
  Sender: FDA-Public Use
  Company Number: US-ELI_LILLY_AND_COMPANY-US_010566603

PATIENT
  Age: 77 Year
  Sex: Male

DRUGS (8)
  1. VANCOMYCIN [Suspect]
     Indication: STAPHYLOCOCCAL INFECTION
     Dosage: UNK, UNKNOWN
  2. DEXAMETHASONE [Concomitant]
     Indication: HAEMORRHAGE INTRACRANIAL
     Dosage: UNK, UNKNOWN
  3. FAMOTIDINE [Concomitant]
     Indication: HAEMORRHAGE INTRACRANIAL
     Dosage: UNK, UNKNOWN
  4. PHENYTOIN [Concomitant]
     Indication: HAEMORRHAGE INTRACRANIAL
     Dosage: UNK, UNKNOWN
  5. DIGOXIN [Concomitant]
     Indication: HAEMORRHAGE INTRACRANIAL
     Dosage: UNK, UNKNOWN
  6. ENALAPRIL [Concomitant]
     Indication: HAEMORRHAGE INTRACRANIAL
     Dosage: UNK, UNKNOWN
  7. ACETAMINOPHEN [Concomitant]
     Indication: HAEMORRHAGE INTRACRANIAL
     Dosage: UNK, UNKNOWN
  8. LEVAQUIN [Concomitant]
     Indication: PYREXIA
     Dosage: UNK, UNKNOWN

REACTIONS (2)
  - Linear IgA disease [Unknown]
  - Haemorrhage intracranial [Fatal]
